FAERS Safety Report 8287354-3 (Version None)
Quarter: 2012Q2

REPORT INFORMATION
  Report Type: 
  Country: None (occurrence: None)
  Receive Date: 20120416
  Receipt Date: 20120406
  Transmission Date: 20120825
  Serious: Yes (Other)
  Sender: FDA-Public Use
  Company Number: US-ASTRAZENECA-2012SE11641

PATIENT
  Age: 54 Year
  Sex: Female
  Weight: 80.7 kg

DRUGS (17)
  1. NEXIUM [Suspect]
     Route: 048
  2. CITALOPRAM [Concomitant]
  3. FEXOFENADINE [Concomitant]
  4. NEXIUM [Suspect]
     Indication: HIATUS HERNIA
     Route: 048
  5. SEROQUEL [Suspect]
     Route: 048
  6. CYCLOBENZAPRINE HYDROCHLORIDE [Concomitant]
     Dosage: HS
  7. POLYETHYLENE GLYCOL [Concomitant]
     Dosage: QD
  8. NEXIUM [Suspect]
     Indication: GASTROOESOPHAGEAL REFLUX DISEASE
     Route: 048
  9. HYOSCYAMINE HCL [Concomitant]
     Dosage: 1-2 125 MG QD
  10. FOLIC ACID [Concomitant]
  11. BUSPIRONE HCL [Concomitant]
  12. CLONAZEPAM [Concomitant]
  13. AMPHETAMINE AND DEXTROAMPHETAMINE SALTS [Concomitant]
  14. CODEINE SULFATE [Concomitant]
  15. NEXIUM [Suspect]
     Route: 048
  16. CALCIUM CARBONATE [Concomitant]
  17. NYSTATIN [Concomitant]
     Dosage: TID

REACTIONS (7)
  - OFF LABEL USE [None]
  - OEDEMA PERIPHERAL [None]
  - TONGUE DRY [None]
  - INTENTIONAL DRUG MISUSE [None]
  - BASAL CELL CARCINOMA [None]
  - PAIN IN EXTREMITY [None]
  - GLOSSODYNIA [None]
